FAERS Safety Report 4497998-2 (Version None)
Quarter: 2004Q4

REPORT INFORMATION
  Report Type: 
  Country: None (occurrence: None)
  Receive Date: 20041110
  Receipt Date: 20041005
  Transmission Date: 20050328
  Serious: Yes (Other)
  Sender: FDA-Public Use
  Company Number: PHFR2004GB03759

PATIENT
  Age: 16 Year
  Sex: Female

DRUGS (3)
  1. TEGRETOL [Suspect]
     Indication: EPILEPSY
     Dosage: 1100MG/DAY
     Route: 048
  2. SALBUTAMOL [Concomitant]
     Indication: ASTHMA
     Dosage: 100MG
     Dates: start: 20020205
  3. BUDESONIDE [Concomitant]
     Indication: ASTHMA
     Dosage: 200MG
     Dates: start: 20040623

REACTIONS (5)
  - ALOPECIA [None]
  - ALOPECIA EFFLUVIUM [None]
  - BLOOD FOLATE DECREASED [None]
  - COELIAC DISEASE [None]
  - SERUM FERRITIN DECREASED [None]
